FAERS Safety Report 18984560 (Version 2)
Quarter: 2021Q2

REPORT INFORMATION
  Report Type: Spontaneous
  Country: US (occurrence: US)
  Receive Date: 20210308
  Receipt Date: 20210407
  Transmission Date: 20210717
  Serious: No
  Sender: FDA-Public Use
  Company Number: US-ETHYPHARM-2021000270

PATIENT
  Sex: Female

DRUGS (1)
  1. BUPRENORPHINE/NALOXONE [Suspect]
     Active Substance: BUPRENORPHINE\NALOXONE
     Dosage: NDC # 50383?0294?93
     Route: 060

REACTIONS (2)
  - Feeling abnormal [Unknown]
  - Product taste abnormal [Unknown]
